FAERS Safety Report 7123590-7 (Version None)
Quarter: 2010Q4

REPORT INFORMATION
  Report Type: 
  Country: None (occurrence: None)
  Receive Date: 20101125
  Receipt Date: 20101119
  Transmission Date: 20110411
  Serious: Yes (Hospitalization)
  Sender: FDA-Public Use
  Company Number: FR-BRISTOL-MYERS SQUIBB COMPANY-15398670

PATIENT
  Age: 70 Year
  Sex: Female

DRUGS (4)
  1. TAXOL [Suspect]
     Indication: METASTASES TO BONE
     Dosage: TAXOL 80 MG/M2 ON DAY1, DAY 8, DAY 15 (143.2 MG) TOTAL 6 COURSES LAST INF 14OCT2009
     Route: 042
     Dates: start: 20090527
  2. TAXOL [Suspect]
     Indication: BREAST CANCER
     Dosage: TAXOL 80 MG/M2 ON DAY1, DAY 8, DAY 15 (143.2 MG) TOTAL 6 COURSES LAST INF 14OCT2009
     Route: 042
     Dates: start: 20090527
  3. AVASTIN [Suspect]
     Indication: METASTASES TO BONE
     Dosage: 10 MG/KG ON DAY 1 AND DAY 15 (760 MG)
     Route: 042
     Dates: start: 20090429, end: 20091101
  4. AVASTIN [Suspect]
     Indication: BREAST CANCER
     Dosage: 10 MG/KG ON DAY 1 AND DAY 15 (760 MG)
     Route: 042
     Dates: start: 20090429, end: 20091101

REACTIONS (4)
  - EJECTION FRACTION DECREASED [None]
  - HYPERTENSION [None]
  - PULMONARY ARTERIAL HYPERTENSION [None]
  - PULMONARY EMBOLISM [None]
